FAERS Safety Report 10338952 (Version 2)
Quarter: 2014Q3

REPORT INFORMATION
  Report Type: Spontaneous
  Country: CA (occurrence: CA)
  Receive Date: 20140724
  Receipt Date: 20140724
  Transmission Date: 20150326
  Serious: Yes (Other)
  Sender: FDA-Public Use
  Company Number: CA-AMGEN-CANSP2014052995

PATIENT
  Age: 70 Year
  Sex: Female

DRUGS (6)
  1. QUINAPRIL                          /00810602/ [Concomitant]
     Dosage: 10.5 MG, UNK
  2. BISOPROLOL                         /00802602/ [Concomitant]
     Dosage: 10 MG, UNK
  3. ARAVA [Concomitant]
     Active Substance: LEFLUNOMIDE
     Dosage: UNK
     Dates: end: 2014
  4. ADVIL (MEFENAMIC ACID) [Concomitant]
     Active Substance: MEFENAMIC ACID
     Dosage: UNK
  5. ELTROXIN [Concomitant]
     Active Substance: LEVOTHYROXINE
     Dosage: 0.375 MG, UNK
  6. ENBREL [Suspect]
     Active Substance: ETANERCEPT
     Indication: RHEUMATOID ARTHRITIS
     Dosage: 50 MG, QWK
     Route: 058
     Dates: start: 20140410, end: 20140705

REACTIONS (6)
  - Joint injury [Not Recovered/Not Resolved]
  - Drug ineffective [Unknown]
  - Carcinoembryonic antigen increased [Not Recovered/Not Resolved]
  - Arthritis [Not Recovered/Not Resolved]
  - Dry mouth [Unknown]
  - Skin disorder [Unknown]

NARRATIVE: CASE EVENT DATE: 2014
